FAERS Safety Report 8231109-2 (Version None)
Quarter: 2012Q1

REPORT INFORMATION
  Report Type: 
  Country: None (occurrence: None)
  Receive Date: 20120322
  Receipt Date: 20120322
  Transmission Date: 20120608
  Serious: Yes (Other)
  Sender: FDA-Public Use
  Company Number: None

PATIENT
  Age: 41 Year
  Sex: Female
  Weight: 52.163 kg

DRUGS (1)
  1. TRANYLCYPROMINE SULFATE [Suspect]
     Indication: DEPRESSION
     Dosage: 60.0 MG
     Route: 048
     Dates: start: 20110525, end: 20110628

REACTIONS (3)
  - HEMIPLEGIA [None]
  - BRAIN INJURY [None]
  - CEREBROVASCULAR ACCIDENT [None]
